FAERS Safety Report 18391281 (Version 2)
Quarter: 2020Q4

REPORT INFORMATION
  Report Type: Report from Study
  Country: US (occurrence: US)
  Receive Date: 20201016
  Receipt Date: 20201202
  Transmission Date: 20210114
  Serious: Yes (Hospitalization)
  Sender: FDA-Public Use
  Company Number: US-ROCHE-2692087

PATIENT
  Age: 63 Year
  Sex: Female
  Weight: 78.4 kg

DRUGS (4)
  1. BEVACIZUMAB. [Suspect]
     Active Substance: BEVACIZUMAB
     Indication: FALLOPIAN TUBE CANCER
  2. BEVACIZUMAB. [Suspect]
     Active Substance: BEVACIZUMAB
     Indication: OVARIAN EPITHELIAL CANCER
     Dosage: SHE RECEIVED MOST RECENT DOSE OF BEVACIZUMAB ON 27/JUL/2020?ON DAYS 1 AND 15 (AS PER PROTOCOL)
     Route: 042
     Dates: start: 20200224
  3. ANETUMAB RAVTANSINE. [Suspect]
     Active Substance: ANETUMAB RAVTANSINE
     Indication: FALLOPIAN TUBE CANCER
  4. ANETUMAB RAVTANSINE. [Suspect]
     Active Substance: ANETUMAB RAVTANSINE
     Indication: OVARIAN EPITHELIAL CANCER
     Dosage: SHE RECEIVED MOST RECENT DOSE OF ANETUMAB RAVTANSINE ON 01/JUN/2020?1 HOUR ON DAYS 1, 8, 15 AND 22 (
     Route: 042
     Dates: start: 20200224, end: 20200622

REACTIONS (1)
  - Small intestinal obstruction [Unknown]

NARRATIVE: CASE EVENT DATE: 20200813
